FAERS Safety Report 8391612-1 (Version None)
Quarter: 2012Q1

REPORT INFORMATION
  Report Type: 
  Country: None (occurrence: None)
  Receive Date: 20120323
  Receipt Date: 20110330
  Transmission Date: 20120608
  Serious: Yes (Hospitalization, Other)
  Sender: FDA-Public Use
  Company Number: 163-21880-11033445

PATIENT
  Age: 84 Year
  Sex: Male

DRUGS (1)
  1. REVLIMID [Suspect]
     Indication: MULTIPLE MYELOMA
     Dosage: 25 MG, DAILY FOR 14 DAYS OUT OF 21 DAYS, PO
     Route: 048
     Dates: start: 20100903

REACTIONS (3)
  - CONFUSIONAL STATE [None]
  - CEREBROVASCULAR ACCIDENT [None]
  - THROMBOCYTOPENIA [None]
